FAERS Safety Report 25721967 (Version 1)
Quarter: 2025Q3

REPORT INFORMATION
  Report Type: Spontaneous
  Country: EU (occurrence: EU)
  Receive Date: 20250825
  Receipt Date: 20250825
  Transmission Date: 20251021
  Serious: Yes (Hospitalization, Other)
  Sender: AUROBINDO
  Company Number: EU-AFSSAPS-RS2025000824

PATIENT
  Age: 84 Year
  Sex: Male

DRUGS (2)
  1. AMOXICILLIN [Suspect]
     Active Substance: AMOXICILLIN
     Indication: Respiratory distress
     Dosage: 1 GRAM, 3 TIMES A DAY
     Route: 048
     Dates: start: 20250727, end: 20250730
  2. CLAVULANIC ACID [Suspect]
     Active Substance: CLAVULANIC ACID
     Indication: Respiratory distress
     Dosage: 125 MILLIGRAM, 3 TIMES A DAY
     Route: 048
     Dates: start: 20250727, end: 20250730

REACTIONS (1)
  - Mixed liver injury [Recovering/Resolving]

NARRATIVE: CASE EVENT DATE: 20250701
